FAERS Safety Report 7646326-X (Version None)
Quarter: 2011Q3

REPORT INFORMATION
  Report Type: 
  Country: None (occurrence: None)
  Receive Date: 20110725
  Receipt Date: 20110708
  Transmission Date: 20111222
  Serious: Yes (Disabling)
  Sender: FDA-Public Use
  Company Number: DSA_47154_2011

PATIENT
  Age: 57 Year
  Sex: Female

DRUGS (3)
  1. ENALAPRIL MALEATE [Suspect]
     Indication: HYPERTENSION
     Dosage: (DF ORAL)
     Route: 048
  2. NON-STEROIDAL ANTI-INFLAMMATORY DRUG (UNSPECIFIED) [Concomitant]
  3. ANALGESICS [Concomitant]

REACTIONS (4)
  - MIGRAINE [None]
  - THERAPEUTIC RESPONSE DECREASED [None]
  - THERAPY RESPONDER [None]
  - CONDITION AGGRAVATED [None]
